FAERS Safety Report 4869321-2 (Version None)
Quarter: 2005Q4

REPORT INFORMATION
  Report Type: 
  Country: None (occurrence: None)
  Receive Date: 20051230
  Receipt Date: 20051212
  Transmission Date: 20060501
  Serious: Yes (Death)
  Sender: FDA-Public Use
  Company Number: IT-NOVOPROD-249256

PATIENT
  Age: 70 Year
  Sex: Male

DRUGS (5)
  1. NOVOSEVEN [Suspect]
     Indication: HAEMORRHAGE
     Dosage: 36 ?G/KG/BODYWEIGHT
     Route: 042
     Dates: start: 20051107, end: 20051107
  2. KANRENOL [Concomitant]
  3. POLASE [Concomitant]
  4. FUROSEMIDE [Concomitant]
  5. ANTIHEMOPHILIC FACTOR (HUMAN) [Concomitant]

REACTIONS (6)
  - ACIDOSIS [None]
  - HYPOCALCAEMIA [None]
  - HYPOTHERMIA [None]
  - MULTI-ORGAN FAILURE [None]
  - SHOCK [None]
  - VENTRICULAR FIBRILLATION [None]
